FAERS Safety Report 10052030 (Version 1)
Quarter: 2014Q2

REPORT INFORMATION
  Report Type: Spontaneous
  Country: GB (occurrence: GB)
  Receive Date: 20140402
  Receipt Date: 20140402
  Transmission Date: 20141212
  Serious: Yes (Other)
  Sender: FDA-Public Use
  Company Number: GB-ROCHE-1374815

PATIENT
  Age: 42 Year
  Sex: Female
  Weight: 120.8 kg

DRUGS (1)
  1. HERCEPTIN [Suspect]
     Indication: BREAST CANCER FEMALE
     Route: 058
     Dates: start: 20140313, end: 20140313

REACTIONS (3)
  - Malaise [Recovered/Resolved]
  - Headache [Recovered/Resolved]
  - Visual impairment [Recovered/Resolved]
